FAERS Safety Report 17593381 (Version 1)
Quarter: 2020Q1

REPORT INFORMATION
  Report Type: Report from Study
  Country: KR (occurrence: KR)
  Receive Date: 20200327
  Receipt Date: 20200327
  Transmission Date: 20200409
  Serious: Yes (Hospitalization)
  Sender: FDA-Public Use
  Company Number: KR-JNJFOC-20200324212

PATIENT
  Age: 65 Year
  Sex: Female
  Weight: 60 kg

DRUGS (1)
  1. ESKETAMINE [Suspect]
     Active Substance: ESKETAMINE
     Indication: DEPRESSION
     Dates: start: 20170807, end: 20200224

REACTIONS (1)
  - Angina unstable [Recovered/Resolved]

NARRATIVE: CASE EVENT DATE: 20200316
